FAERS Safety Report 5479072-1 (Version None)
Quarter: 2007Q4

REPORT INFORMATION
  Report Type: 
  Country: None (occurrence: None)
  Receive Date: 20071002
  Receipt Date: 20070914
  Transmission Date: 20080405
  Serious: Yes (Other)
  Sender: FDA-Public Use
  Company Number: 8026859

PATIENT
  Age: 42 Year
  Sex: Male
  Weight: 72.7 kg

DRUGS (6)
  1. KEPPRA [Suspect]
     Indication: CONVULSION
     Dosage: 250 MG 2/D PO
     Route: 048
     Dates: start: 20050301, end: 20050501
  2. KEPPRA [Suspect]
     Indication: CONVULSION
     Dosage: 500 MG 2/D PO
     Route: 048
     Dates: start: 20050501
  3. KEPPRA [Suspect]
     Indication: CONVULSION
     Dosage: 500 MG PO
     Route: 048
     Dates: start: 20070916
  4. KEPPRA [Suspect]
     Indication: CONVULSION
     Dosage: 250 MG PO
     Route: 048
     Dates: start: 20070918
  5. TEGRETOL [Concomitant]
  6. MYSOLINE [Concomitant]

REACTIONS (22)
  - ABNORMAL BEHAVIOUR [None]
  - ACNE [None]
  - AFFECT LABILITY [None]
  - AGGRESSION [None]
  - AMNESIA [None]
  - ANGER [None]
  - ANOREXIA [None]
  - ANXIETY [None]
  - ASTHENIA [None]
  - CONTUSION [None]
  - COUGH [None]
  - DEPRESSION [None]
  - DYSARTHRIA [None]
  - FATIGUE [None]
  - GAIT DISTURBANCE [None]
  - GINGIVITIS [None]
  - MIGRAINE [None]
  - NAUSEA [None]
  - PRURITUS [None]
  - SOMNOLENCE [None]
  - SUICIDAL IDEATION [None]
  - THINKING ABNORMAL [None]
